FAERS Safety Report 7436039-1 (Version None)
Quarter: 2011Q2

REPORT INFORMATION
  Report Type: 
  Country: None (occurrence: None)
  Receive Date: 20110425
  Receipt Date: 20091120
  Transmission Date: 20111010
  Serious: Yes (Death, Hospitalization, Other)
  Sender: FDA-Public Use
  Company Number: US-BAYER-200940007NA

PATIENT
  Age: 83 Year
  Sex: Male
  Weight: 81.633 kg

DRUGS (23)
  1. TRASYLOL [Suspect]
     Indication: STERNOTOMY
     Dosage: 1 ML, INITIAL TEST
     Route: 042
     Dates: start: 20040622
  2. NORVASC [Concomitant]
     Dosage: 5 MG, QD
     Route: 048
  3. LASIX [Concomitant]
     Dosage: 200 MG/ MIN INFUSION
     Route: 042
     Dates: start: 20040622
  4. INSULIN HUMAN [Concomitant]
     Dosage: UNK
     Route: 042
     Dates: start: 20040622
  5. TRASYLOL [Suspect]
     Indication: PLEURODESIS
  6. AVAPRO [Concomitant]
     Dosage: 150 MG, QD
     Route: 048
  7. HEPARIN [Concomitant]
     Dosage: 10000 U, UNK
     Route: 042
     Dates: start: 20040622, end: 20040622
  8. LEVOPHED [Concomitant]
     Dosage: 8 MG/250 CC TITRATE
     Route: 042
     Dates: start: 20040622
  9. PLATELETS [Concomitant]
     Dosage: UNK
     Dates: start: 20040622
  10. LANOXIN [Concomitant]
     Dosage: 0.125 MG, QD
     Route: 048
     Dates: start: 20040620
  11. FRESH FROZEN PLASMA [Concomitant]
     Dosage: 4 U, UNK
     Route: 042
     Dates: start: 20040620
  12. TRASYLOL [Suspect]
     Indication: MITRAL VALVE REPLACEMENT
  13. NITROGLYCERIN [Concomitant]
     Dosage: UNK
     Route: 042
     Dates: start: 20040622, end: 20040622
  14. MANNITOL [Concomitant]
     Dosage: 12.5 G, UNK
     Route: 042
     Dates: start: 20040622, end: 20040622
  15. TRASYLOL [Suspect]
     Indication: INTRA-AORTIC BALLOON PLACEMENT
     Dosage: 100 ML BOLUS
     Route: 042
  16. LASIX [Concomitant]
     Dosage: 20 MG, QD
     Route: 048
  17. COUMADIN [Concomitant]
     Dosage: 6 MG, BIW
  18. RED BLOOD CELLS, CONCENTRATED [Concomitant]
     Dosage: 3 U, UNK
     Route: 042
     Dates: start: 20040622
  19. RED BLOOD CELLS, CONCENTRATED [Concomitant]
     Dosage: 1 UNK, UNK
     Dates: start: 20040623
  20. TRASYLOL [Suspect]
     Indication: AORTIC VALVE REPLACEMENT
     Dosage: 25 CC/HR INFUSION RATE
     Route: 042
     Dates: end: 20040622
  21. COUMADIN [Concomitant]
     Dosage: 3 MG, QD
     Route: 048
  22. PHENYLEPHRINE HCL [Concomitant]
     Dosage: 100 MG/250 CC TITRATE
     Route: 042
     Dates: start: 20040622
  23. MILRINONE [Concomitant]
     Dosage: UNK
     Route: 042
     Dates: start: 20040622, end: 20040622

REACTIONS (7)
  - RENAL FAILURE ACUTE [None]
  - DEATH [None]
  - INJURY [None]
  - RENAL INJURY [None]
  - RENAL FAILURE [None]
  - PAIN [None]
  - UNEVALUABLE EVENT [None]
